FAERS Safety Report 4803711-9 (Version None)
Quarter: 2005Q4

REPORT INFORMATION
  Report Type: 
  Country: None (occurrence: None)
  Receive Date: 20051019
  Receipt Date: 20050610
  Transmission Date: 20060501
  Serious: Yes (Hospitalization)
  Sender: FDA-Public Use
  Company Number: US-MERCK-0506USA01849

PATIENT
  Age: 77 Year
  Sex: Male
  Weight: 86 kg

DRUGS (4)
  1. VIOXX [Suspect]
     Indication: OSTEOARTHRITIS
     Route: 048
     Dates: start: 20040220, end: 20040707
  2. VIOXX [Suspect]
     Indication: PERIARTHRITIS
     Route: 048
     Dates: start: 20040220, end: 20040707
  3. LISINOPRIL [Concomitant]
     Indication: HYPERTENSION
     Route: 048
  4. MAXZIDE [Concomitant]
     Indication: HYPERTENSION
     Route: 065

REACTIONS (7)
  - BLOOD CREATINE PHOSPHOKINASE MB INCREASED [None]
  - BRAIN STEM INFARCTION [None]
  - BUNDLE BRANCH BLOCK LEFT [None]
  - HYPERTENSION [None]
  - INJURY [None]
  - PROTHROMBIN LEVEL INCREASED [None]
  - SINUS BRADYCARDIA [None]
